FAERS Safety Report 15857330 (Version 1)
Quarter: 2019Q1

REPORT INFORMATION
  Report Type: Spontaneous
  Country: JP (occurrence: JP)
  Receive Date: 20190123
  Receipt Date: 20190123
  Transmission Date: 20190417
  Serious: Yes (Hospitalization)
  Sender: FDA-Public Use
  Company Number: JP-BAYER-2019-013414

PATIENT
  Age: 7 Decade
  Sex: Male

DRUGS (4)
  1. BAYASPIRIN 100 MG [Interacting]
     Active Substance: ASPIRIN
     Indication: MYOCARDIAL INFARCTION
  2. CLOPIDOGREL [Interacting]
     Active Substance: CLOPIDOGREL BISULFATE
     Indication: CEREBRAL INFARCTION
  3. CLOPIDOGREL [Interacting]
     Active Substance: CLOPIDOGREL BISULFATE
     Indication: MYOCARDIAL INFARCTION
  4. BAYASPIRIN 100 MG [Suspect]
     Active Substance: ASPIRIN
     Indication: CEREBRAL INFARCTION
     Route: 048

REACTIONS (3)
  - Labelled drug-drug interaction medication error [None]
  - Oesophageal intramural haematoma [Recovered/Resolved]
  - Oesophageal ulcer [Recovered/Resolved]
